FAERS Safety Report 20994419 (Version 1)
Quarter: 2022Q2

REPORT INFORMATION
  Report Type: Spontaneous
  Country: DE (occurrence: DE)
  Receive Date: 20220622
  Receipt Date: 20220622
  Transmission Date: 20220721
  Serious: Yes (Other)
  Sender: FDA-Public Use
  Company Number: DE-NOVARTISPH-NVSC2022DE140324

PATIENT

DRUGS (4)
  1. ENTRESTO [Suspect]
     Active Substance: SACUBITRIL\VALSARTAN
     Indication: Cardiac failure
     Dosage: UNK, BID (1-0-1)
     Route: 065
     Dates: start: 2021
  2. ENTRESTO [Suspect]
     Active Substance: SACUBITRIL\VALSARTAN
     Indication: Ventricular extrasystoles
  3. EPLERENONE [Suspect]
     Active Substance: EPLERENONE
     Indication: Cardiac failure
     Dosage: UNK, QD (1-0-0)
     Route: 065
     Dates: start: 2021
  4. EPLERENONE [Suspect]
     Active Substance: EPLERENONE
     Indication: Ventricular extrasystoles

REACTIONS (7)
  - Arrhythmia [Unknown]
  - Abdominal distension [Unknown]
  - Ventricular extrasystoles [Unknown]
  - Fatigue [Unknown]
  - Dyspnoea [Unknown]
  - Chest discomfort [Unknown]
  - Panic reaction [Unknown]

NARRATIVE: CASE EVENT DATE: 20220101
